FAERS Safety Report 15129162 (Version 2)
Quarter: 2018Q3

REPORT INFORMATION
  Report Type: Spontaneous
  Country: US (occurrence: US)
  Receive Date: 20180711
  Receipt Date: 20180712
  Transmission Date: 20181010
  Serious: No
  Sender: FDA-Public Use
  Company Number: US-PFIZER INC-2018276334

PATIENT
  Age: 39 Year
  Sex: Female
  Weight: 60.33 kg

DRUGS (1)
  1. CYTOMEL [Suspect]
     Active Substance: LIOTHYRONINE SODIUM
     Indication: AUTOIMMUNE THYROIDITIS
     Dosage: 25 MCG TABLET, TAKE ONE TABLET BY MOUTH ON AN EMPTY STOMACH THREE TIMES PER DAY
     Route: 048
     Dates: start: 2010

REACTIONS (5)
  - Malaise [Unknown]
  - Drug ineffective [Unknown]
  - Blood thyroid stimulating hormone increased [Unknown]
  - Expired product administered [Unknown]
  - Tri-iodothyronine decreased [Unknown]

NARRATIVE: CASE EVENT DATE: 20180705
